FAERS Safety Report 13737717 (Version 1)
Quarter: 2017Q3

REPORT INFORMATION
  Report Type: Report from Study
  Country: US (occurrence: US)
  Receive Date: 20170710
  Receipt Date: 20170710
  Transmission Date: 20171127
  Serious: No
  Sender: FDA-Public Use
  Company Number: US-SAOL THERAPEUTICS-2017SAO00934

PATIENT

DRUGS (12)
  1. BUPIVACAINE. [Suspect]
     Active Substance: BUPIVACAINE
     Dosage: 11.260 MG, \DAY
     Route: 037
     Dates: start: 20160506
  2. CLONIDINE. [Suspect]
     Active Substance: CLONIDINE
     Dosage: 112.60 ?G, \DAY
     Route: 037
     Dates: start: 20160418, end: 20160506
  3. DILAUDID [Suspect]
     Active Substance: HYDROMORPHONE HYDROCHLORIDE
     Dosage: 0.7507 MG, \DAY
     Route: 037
     Dates: start: 20160506
  4. CLONIDINE. [Suspect]
     Active Substance: CLONIDINE
     Dosage: 150.14 ?G, \DAY
     Route: 037
     Dates: start: 20160506
  5. COMPOUNDED BACLOFEN [Suspect]
     Active Substance: BACLOFEN
     Dosage: 112.6 ?G, \DAY
     Route: 037
     Dates: start: 20160418, end: 20160506
  6. DILAUDID [Suspect]
     Active Substance: HYDROMORPHONE HYDROCHLORIDE
     Dosage: 0.7507 MG, \DAY
     Route: 037
     Dates: start: 20160418, end: 20160506
  7. DILAUDID [Suspect]
     Active Substance: HYDROMORPHONE HYDROCHLORIDE
     Dosage: 1.0382 MG, \DAY
     Route: 037
     Dates: start: 20160418, end: 20160506
  8. COMPOUNDED BACLOFEN [Suspect]
     Active Substance: BACLOFEN
     Dosage: 155.72 ?G, \DAY
     Route: 037
     Dates: start: 20160418, end: 20160506
  9. COMPOUNDED BACLOFEN [Suspect]
     Active Substance: BACLOFEN
     Dosage: 150.14 ?G, \DAY
     Route: 037
     Dates: start: 20160506
  10. BUPIVACAINE. [Suspect]
     Active Substance: BUPIVACAINE
     Dosage: 31.145 MG, \DAY
     Route: 037
     Dates: start: 20160418, end: 20160506
  11. CLONIDINE. [Suspect]
     Active Substance: CLONIDINE
     Dosage: 155.72 ?G, \DAY
     Route: 037
     Dates: start: 20160418, end: 20160506
  12. BUPIVACAINE. [Suspect]
     Active Substance: BUPIVACAINE
     Dosage: 22.521 MG, \DAY
     Route: 037
     Dates: start: 20160418, end: 20160506

REACTIONS (2)
  - Dry mouth [Recovered/Resolved]
  - Nasal congestion [Recovered/Resolved]

NARRATIVE: CASE EVENT DATE: 20160506
